FAERS Safety Report 25785890 (Version 1)
Quarter: 2025Q3

REPORT INFORMATION
  Report Type: Spontaneous
  Country: US (occurrence: None)
  Receive Date: 20250909
  Receipt Date: 20250909
  Transmission Date: 20251020
  Serious: Yes (Death)
  Sender: FDA-CTU
  Company Number: None

PATIENT
  Age: 79 Year
  Sex: Male

DRUGS (17)
  1. PIRFENIDONE [Suspect]
     Active Substance: PIRFENIDONE
     Indication: Idiopathic pulmonary fibrosis
     Dosage: 267MG TID  ORAL
     Route: 048
     Dates: start: 20191106, end: 20250805
  2. TROSPIUM [Concomitant]
     Active Substance: TROSPIUM
  3. FLOMAX [Concomitant]
     Active Substance: TAMSULOSIN HYDROCHLORIDE
  4. SPIRONOLACTONE [Concomitant]
     Active Substance: SPIRONOLACTONE
  5. SENNA PLUS [Concomitant]
     Active Substance: DOCUSATE SODIUM\SENNOSIDES\SENNOSIDES A AND B
  6. XARELTO [Concomitant]
     Active Substance: RIVAROXABAN
  7. PAROXETINE [Concomitant]
     Active Substance: PAROXETINE
  8. OXYCODONE [Concomitant]
     Active Substance: OXYCODONE
  9. ONDANSETRON [Concomitant]
     Active Substance: ONDANSETRON
  10. OMEPRAZOLE [Concomitant]
     Active Substance: OMEPRAZOLE
  11. Morphine Concentrate [Concomitant]
  12. LURASIDONE [Concomitant]
     Active Substance: LURASIDONE
  13. LORAZEPAM [Concomitant]
     Active Substance: LORAZEPAM
  14. DIVALPROEX SODIUM [Concomitant]
     Active Substance: DIVALPROEX SODIUM
  15. CLONAZEPAM [Concomitant]
     Active Substance: CLONAZEPAM
  16. BISACODYL [Concomitant]
     Active Substance: BISACODYL
  17. ACETAMINOPHEN [Concomitant]
     Active Substance: ACETAMINOPHEN

REACTIONS (1)
  - Hospice care [None]

NARRATIVE: CASE EVENT DATE: 20250805
